FAERS Safety Report 5176355-X (Version None)
Quarter: 2006Q4

REPORT INFORMATION
  Report Type: 
  Country: None (occurrence: None)
  Receive Date: 20061215
  Receipt Date: 20061204
  Transmission Date: 20070319
  Serious: Yes (Hospitalization)
  Sender: FDA-Public Use
  Company Number: PHHO2006FR20556

PATIENT
  Age: 40 Year
  Sex: Female
  Weight: 48 kg

DRUGS (3)
  1. CGP 57148B [Suspect]
     Indication: ACUTE LYMPHOCYTIC LEUKAEMIA
     Dosage: 400 MG, QD
     Route: 048
     Dates: start: 20061114, end: 20061123
  2. PURINETHOL [Suspect]
     Dates: start: 20061114, end: 20061123
  3. METHOTREXATE [Suspect]

REACTIONS (5)
  - FEBRILE NEUTROPENIA [None]
  - MUCOSAL INFLAMMATION [None]
  - OESOPHAGITIS [None]
  - PANCYTOPENIA [None]
  - PHARYNGITIS [None]
